FAERS Safety Report 15255557 (Version 1)
Quarter: 2018Q3

REPORT INFORMATION
  Report Type: Spontaneous
  Country: JP (occurrence: JP)
  Receive Date: 20180808
  Receipt Date: 20180808
  Transmission Date: 20181010
  Serious: Yes (Hospitalization, Other)
  Sender: FDA-Public Use
  Company Number: JP-BAUSCH-BL-2018-021529

PATIENT
  Age: 76 Year
  Sex: Female

DRUGS (3)
  1. CHLORHEXIDINE GLUCONATE SOLUTION 0.1% [Concomitant]
     Indication: INFECTION PROPHYLAXIS
     Route: 065
  2. PREDNISOLONE. [Suspect]
     Active Substance: PREDNISOLONE
     Indication: COLITIS ULCERATIVE
     Route: 048
  3. INFLIXIMAB [Suspect]
     Active Substance: INFLIXIMAB
     Indication: COLITIS ULCERATIVE
     Dosage: 200 MG PER 8 WEEKS
     Route: 065

REACTIONS (1)
  - Necrotising fasciitis streptococcal [Recovered/Resolved]
